FAERS Safety Report 8609781-4 (Version None)
Quarter: 2012Q3

REPORT INFORMATION
  Report Type: 
  Country: None (occurrence: None)
  Receive Date: 20120821
  Receipt Date: 20120816
  Transmission Date: 20120928
  Serious: Yes (Hospitalization)
  Sender: FDA-Public Use
  Company Number: CO-PFIZER INC-2010112298

PATIENT
  Age: 69 Year
  Sex: Female
  Weight: 80.4 kg

DRUGS (7)
  1. SALBUTAMOL [Concomitant]
     Indication: CHRONIC OBSTRUCTIVE PULMONARY DISEASE
     Dosage: UNK
     Route: 055
     Dates: start: 20070101
  2. LOVASTATIN [Concomitant]
     Indication: DYSLIPIDAEMIA
     Dosage: 20 MG, 1X/DAY
     Route: 048
     Dates: start: 20050801
  3. NEXIUM [Concomitant]
     Indication: PROPHYLAXIS AGAINST GASTROINTESTINAL ULCER
     Dosage: 20 MG, 1X/DAY
     Route: 048
     Dates: start: 20081015, end: 20100629
  4. LOSARTAN [Concomitant]
     Indication: HYPERTENSION
     Dosage: 50 MG, 2X/DAY
     Route: 048
     Dates: start: 20100504
  5. AMLODIPINE [Concomitant]
     Indication: HYPERTENSION
     Dosage: 15 MG, 1X/DAY
     Route: 048
     Dates: start: 20020601
  6. HYDROCHLOROTHIAZIDE [Concomitant]
     Indication: HYPERTENSION
     Dosage: 25 MG, 1X/DAY
     Route: 048
     Dates: start: 20100504
  7. IBUPROFEN [Suspect]
     Indication: ARTHRITIS
     Dosage: 600 MG, 3X/DAY
     Route: 048
     Dates: start: 20081015, end: 20100629

REACTIONS (2)
  - HYPERTENSIVE HEART DISEASE [None]
  - MYOCARDIAL INFARCTION [None]
